FAERS Safety Report 6925987-4 (Version None)
Quarter: 2010Q3

REPORT INFORMATION
  Report Type: 
  Country: None (occurrence: None)
  Receive Date: 20100816
  Receipt Date: 20100804
  Transmission Date: 20110219
  Serious: Yes (Hospitalization)
  Sender: FDA-Public Use
  Company Number: GB-PFIZER INC-2010097786

PATIENT
  Age: 84 Year
  Sex: Male

DRUGS (4)
  1. PHENYTOIN SODIUM CAP [Suspect]
     Dosage: 300 MG, 1X/DAY
     Dates: start: 20100630, end: 20100801
  2. TEMAZEPAM [Concomitant]
     Dosage: 40 MG, UNK
  3. PERINDOPRIL [Concomitant]
     Indication: BLOOD PRESSURE
  4. ACETYLSALICYLIC ACID [Concomitant]
     Indication: CEREBROVASCULAR ACCIDENT PROPHYLAXIS

REACTIONS (2)
  - MENTAL DISORDER [None]
  - PSYCHOTIC DISORDER [None]
